FAERS Safety Report 9657696 (Version 1)
Quarter: 2013Q4

REPORT INFORMATION
  Report Type: Spontaneous
  Country: US (occurrence: US)
  Receive Date: 20131030
  Receipt Date: 20131030
  Transmission Date: 20140711
  Serious: No
  Sender: FDA-Public Use
  Company Number: US-BAXTER-2013BAX041535

PATIENT
  Age: 62 Year
  Sex: Female

DRUGS (12)
  1. GAMMAGARD S/D [Suspect]
     Indication: HYPOGAMMAGLOBULINAEMIA
     Route: 042
  2. GAMMAGARD S/D [Suspect]
     Dates: start: 201307
  3. GAMMAGARD S/D [Suspect]
     Dates: start: 20131006
  4. SIMVASTATIN [Concomitant]
     Indication: HYPERCHOLESTEROLAEMIA
     Route: 048
  5. COMBIGAN [Concomitant]
     Indication: GLAUCOMA
     Route: 047
  6. TRAVATAN [Concomitant]
     Indication: GLAUCOMA
     Route: 047
  7. ORENCIA [Concomitant]
     Indication: ROSACEA
  8. CALCIUM SUPPLEMENT [Concomitant]
     Indication: PRODUCT USED FOR UNKNOWN INDICATION
  9. CALCIUM SUPPLEMENT [Concomitant]
     Indication: PRODUCT USED FOR UNKNOWN INDICATION
  10. D3 SUPPLEMENT [Concomitant]
     Indication: PRODUCT USED FOR UNKNOWN INDICATION
  11. B12 [Concomitant]
     Indication: PRODUCT USED FOR UNKNOWN INDICATION
     Route: 058
  12. GAMUNEX [Concomitant]
     Indication: HYPOGAMMAGLOBULINAEMIA
     Dosage: 20G GRADUALLY INCREASED TO 30G
     Route: 065
     Dates: start: 1988, end: 1992

REACTIONS (5)
  - Product container issue [Recovered/Resolved]
  - Underdose [Recovered/Resolved]
  - Immunoglobulins decreased [Not Recovered/Not Resolved]
  - Product container issue [Recovered/Resolved]
  - Underdose [Recovered/Resolved]
